FAERS Safety Report 7280199-2 (Version None)
Quarter: 2011Q1

REPORT INFORMATION
  Report Type: 
  Country: None (occurrence: None)
  Receive Date: 20110208
  Receipt Date: 20110203
  Transmission Date: 20110831
  Serious: Yes (Death, Hospitalization)
  Sender: FDA-Public Use
  Company Number: US-JNJFOC-20110201676

PATIENT
  Age: 4 Decade
  Sex: Male

DRUGS (4)
  1. RISPERIDONE [Suspect]
     Indication: ILL-DEFINED DISORDER
     Route: 048
  2. LITHIUM CARBONATE [Concomitant]
     Route: 065
  3. LOPRESSOR [Concomitant]
     Route: 065
  4. METFORMIN HCL [Concomitant]
     Indication: DIABETES MELLITUS
     Route: 065

REACTIONS (4)
  - PNEUMONIA [None]
  - HOSPITALISATION [None]
  - DEATH [None]
  - RENAL FAILURE [None]
